FAERS Safety Report 12885357 (Version 2)
Quarter: 2016Q4

REPORT INFORMATION
  Report Type: Spontaneous
  Country: YE (occurrence: YE)
  Receive Date: 20161026
  Receipt Date: 20161107
  Transmission Date: 20170207
  Serious: Yes (Other)
  Sender: FDA-Public Use
  Company Number: YE-GLAXOSMITHKLINE-YE2016GSK153717

PATIENT
  Age: 40 Year
  Sex: Female

DRUGS (5)
  1. BRUFEN [Interacting]
     Active Substance: IBUPROFEN
     Indication: ANTIINFLAMMATORY THERAPY
     Dosage: 400 MG, TID
     Route: 048
     Dates: start: 201610, end: 201610
  2. BRUFEN [Interacting]
     Active Substance: IBUPROFEN
     Indication: ANALGESIC THERAPY
  3. NEXIUM [Interacting]
     Active Substance: ESOMEPRAZOLE MAGNESIUM
     Indication: ANTACID THERAPY
     Dosage: 20 MG, BID
     Route: 048
     Dates: start: 201610, end: 201610
  4. ZINNAT [Suspect]
     Active Substance: CEFUROXIME AXETIL
     Indication: DENTAL CARE
     Dosage: 500 MG, BID
     Route: 048
     Dates: start: 201610, end: 201610
  5. PARACETAMOL/ CAFFEINE/ CODEINE [Interacting]
     Active Substance: ACETAMINOPHEN\CAFFEINE\CODEINE
     Indication: ANALGESIC THERAPY
     Dosage: 2 UNK, TID
     Route: 048
     Dates: start: 201610, end: 201610

REACTIONS (4)
  - Hypoglycaemia [Recovered/Resolved]
  - Seizure [Recovered/Resolved]
  - Loss of consciousness [Recovered/Resolved]
  - Drug interaction [Recovered/Resolved]

NARRATIVE: CASE EVENT DATE: 201610
